FAERS Safety Report 8121561-5 (Version None)
Quarter: 2012Q1

REPORT INFORMATION
  Report Type: 
  Country: None (occurrence: None)
  Receive Date: 20120203
  Receipt Date: 20120126
  Transmission Date: 20120608
  Serious: Yes (Death, Hospitalization, Other)
  Sender: FDA-Public Use
  Company Number: AUR-APL-2009-00947

PATIENT
  Age: 76 Year
  Sex: Male

DRUGS (7)
  1. METFORMIN HCL [Suspect]
     Indication: DIABETES MELLITUS
     Dosage: ORAL
     Route: 048
     Dates: end: 20080208
  2. RAMIPRIL [Suspect]
     Indication: HYPERTENSION
     Dosage: ORAL
     Route: 048
     Dates: end: 20080208
  3. FUROSEMIDE [Concomitant]
  4. AMARYL [Concomitant]
  5. CORDIPATCH (GLYCERYL TRINITRATE) [Concomitant]
  6. ALDACTONE [Suspect]
     Indication: HYPERTENSION
     Dosage: ORAL
     Route: 048
     Dates: end: 20080208
  7. ADANCOR (NICORANDIL) [Concomitant]

REACTIONS (10)
  - RENAL FAILURE ACUTE [None]
  - PLATELET COUNT DECREASED [None]
  - LACTIC ACIDOSIS [None]
  - ORTHOPNOEA [None]
  - CARDIAC ARREST [None]
  - VENTRICULAR TACHYCARDIA [None]
  - DIARRHOEA [None]
  - CARDIO-RESPIRATORY ARREST [None]
  - OEDEMA PERIPHERAL [None]
  - HYPERKALAEMIA [None]
